FAERS Safety Report 6430254-1 (Version None)
Quarter: 2009Q4

REPORT INFORMATION
  Report Type: 
  Country: None (occurrence: None)
  Receive Date: 20091106
  Receipt Date: 20091102
  Transmission Date: 20100525
  Serious: Yes (Other)
  Sender: FDA-Public Use
  Company Number: CH-ROCHE-666138

PATIENT
  Sex: Female

DRUGS (3)
  1. XELODA [Suspect]
     Route: 048
  2. AVASTIN [Suspect]
     Dosage: FREQUENCY: SINGLE, FORM: INFUSION
     Route: 042
     Dates: start: 20091001, end: 20091001
  3. OXALIPLATIN [Concomitant]

REACTIONS (1)
  - EMBOLIC CEREBRAL INFARCTION [None]
